FAERS Safety Report 20524005 (Version 1)
Quarter: 2022Q1

REPORT INFORMATION
  Report Type: Report from Study
  Country: GB (occurrence: GB)
  Receive Date: 20220228
  Receipt Date: 20220228
  Transmission Date: 20220423
  Serious: Yes (Other)
  Sender: FDA-Public Use
  Company Number: GB-GILEAD-2022-0571097

PATIENT
  Sex: Female

DRUGS (1)
  1. COBICISTAT\ELVITEGRAVIR\EMTRICITABINE\TENOFOVIR [Suspect]
     Active Substance: COBICISTAT\ELVITEGRAVIR\EMTRICITABINE\TENOFOVIR
     Indication: Product used for unknown indication
     Dosage: UNK, QD
     Route: 065
     Dates: end: 20220131

REACTIONS (1)
  - Thrombosis [Unknown]
